FAERS Safety Report 18038545 (Version 1)
Quarter: 2020Q3

REPORT INFORMATION
  Report Type: Spontaneous
  Country: US (occurrence: US)
  Receive Date: 20200717
  Receipt Date: 20200717
  Transmission Date: 20201103
  Serious: No
  Sender: FDA-Public Use
  Company Number: US-PFIZER INC-2020251894

PATIENT
  Age: 64 Year
  Sex: Female
  Weight: 81.19 kg

DRUGS (2)
  1. LYRICA [Suspect]
     Active Substance: PREGABALIN
     Indication: NEUROPATHY PERIPHERAL
  2. LYRICA [Suspect]
     Active Substance: PREGABALIN
     Indication: NEURALGIA
     Dosage: 50 MG, 3X/DAY (TAKE 1 CAPSULE 3 TIMES DAILY)
     Route: 048
     Dates: start: 2019

REACTIONS (2)
  - Disease progression [Unknown]
  - Hilar lymphadenopathy [Unknown]
